FAERS Safety Report 14289876 (Version 1)
Quarter: 2017Q4

REPORT INFORMATION
  Report Type: Spontaneous
  Country: US (occurrence: US)
  Receive Date: 20171215
  Receipt Date: 20171215
  Transmission Date: 20180321
  Serious: Yes (Other)
  Sender: FDA-Public Use
  Company Number: None

PATIENT
  Age: 38 Year
  Sex: Female
  Weight: 108.9 kg

DRUGS (19)
  1. PROPRANOLOL [Concomitant]
     Active Substance: PROPRANOLOL HYDROCHLORIDE
  2. BACLOFEN. [Concomitant]
     Active Substance: BACLOFEN
  3. MELOXICAM. [Concomitant]
     Active Substance: MELOXICAM
  4. VITAMIN C [Concomitant]
     Active Substance: ASCORBIC ACID
  5. PROMETHAZINE [Concomitant]
     Active Substance: PROMETHAZINE\PROMETHAZINE HYDROCHLORIDE
  6. LOTAZEPAM [Concomitant]
  7. VITAMIN B12 [Concomitant]
     Active Substance: CYANOCOBALAMIN
  8. FISH OIL [Concomitant]
     Active Substance: FISH OIL
  9. CARAFATE [Concomitant]
     Active Substance: SUCRALFATE
  10. VITAMIN D [Concomitant]
     Active Substance: CHOLECALCIFEROL
  11. MULTIVITAMIN [Concomitant]
     Active Substance: VITAMINS
  12. GABAPENTIN. [Concomitant]
     Active Substance: GABAPENTIN
  13. LISINOPRIL. [Concomitant]
     Active Substance: LISINOPRIL
  14. FUROSEMIDE. [Concomitant]
     Active Substance: FUROSEMIDE
  15. ACTEMRA [Suspect]
     Active Substance: TOCILIZUMAB
     Indication: RHEUMATOID ARTHRITIS
     Dosage: ?          QUANTITY:1 INJECTION(S);OTHER FREQUENCY:BI-WEEKLY;?
     Route: 058
     Dates: start: 20170327, end: 20170831
  16. PREDNISONE. [Concomitant]
     Active Substance: PREDNISONE
  17. OXYCODONE [Concomitant]
     Active Substance: OXYCODONE
  18. VITAMIN B COMPLEX [Concomitant]
     Active Substance: CYANOCOBALAMIN\DEXPANTHENOL\NIACINAMIDE\PYRIDOXINE HYDROCHLORIDE\RIBOFLAVIN 5^-PHOSPHATE SODIUM\THIAMINE HYDROCHLORIDE\VITAMIN B COMPLEX
  19. FLUOXETINE [Concomitant]
     Active Substance: FLUOXETINE HYDROCHLORIDE

REACTIONS (2)
  - Fluid retention [None]
  - Blood pressure increased [None]

NARRATIVE: CASE EVENT DATE: 20170517
